FAERS Safety Report 5602697-7 (Version None)
Quarter: 2008Q1

REPORT INFORMATION
  Report Type: 
  Country: None (occurrence: None)
  Receive Date: 20080125
  Receipt Date: 20080114
  Transmission Date: 20080703
  Serious: Yes (Other)
  Sender: FDA-Public Use
  Company Number: GB-GILEAD-2008-0015000

PATIENT
  Age: 26 Year
  Sex: Male

DRUGS (1)
  1. TRUVADA [Suspect]
     Route: 048
     Dates: start: 20071129, end: 20071206

REACTIONS (2)
  - HEADACHE [None]
  - SWELLING [None]
